FAERS Safety Report 5046510-8 (Version None)
Quarter: 2006Q3

REPORT INFORMATION
  Report Type: 
  Country: None (occurrence: None)
  Receive Date: 20060705
  Receipt Date: 20060705
  Transmission Date: 20061208
  Serious: Yes (Hospitalization, Other)
  Sender: FDA-Public Use
  Company Number: None

PATIENT
  Age: 81 Year
  Sex: Male
  Weight: 96.7 kg

DRUGS (11)
  1. RITUXIMAB [Suspect]
     Indication: CHRONIC LYMPHOCYTIC LEUKAEMIA
     Dosage: 825MG  IV  IN NS  (THERAPY DATES: 4/18/06 + 5 PREV DATES)
     Route: 042
     Dates: start: 20060418
  2. EPO [Concomitant]
  3. BENADRYL [Concomitant]
  4. TYLENOL (CAPLET) [Concomitant]
  5. B12 [Concomitant]
  6. FES04 [Concomitant]
  7. L-THYROXINE [Concomitant]
  8. LISINOPRIL [Concomitant]
  9. TRAMADOL HCL [Concomitant]
  10. PHENERGAN HCL [Concomitant]
  11. LOPERAMIDE [Concomitant]

REACTIONS (6)
  - BACK PAIN [None]
  - CHEST PAIN [None]
  - CHILLS [None]
  - HYPERSENSITIVITY [None]
  - INFUSION RELATED REACTION [None]
  - NAUSEA [None]
